FAERS Safety Report 26146876 (Version 1)
Quarter: 2025Q4

REPORT INFORMATION
  Report Type: Spontaneous
  Country: US (occurrence: US)
  Receive Date: 20251211
  Receipt Date: 20251211
  Transmission Date: 20260117
  Serious: Yes (Hospitalization)
  Sender: JUBILANT
  Company Number: US-JUBILANT CADISTA PHARMACEUTICALS-2025JUB00129

PATIENT
  Age: 42 Year
  Sex: Male

DRUGS (1)
  1. LOPERAMIDE HYDROCHLORIDE [Suspect]
     Active Substance: LOPERAMIDE HYDROCHLORIDE
     Indication: Drug withdrawal syndrome
     Dosage: 100 TO 200 MG PER DAY

REACTIONS (3)
  - Seizure [Recovered/Resolved]
  - Ventricular arrhythmia [Recovered/Resolved]
  - Intentional product misuse [Recovered/Resolved]
